FAERS Safety Report 22594275 (Version 1)
Quarter: 2023Q2

REPORT INFORMATION
  Report Type: Spontaneous
  Country: US (occurrence: None)
  Receive Date: 20230612
  Receipt Date: 20230612
  Transmission Date: 20230722
  Serious: Yes (Hospitalization)
  Sender: FDA-Public Use
  Company Number: None

PATIENT
  Sex: Male

DRUGS (1)
  1. CAPECITABINE [Suspect]
     Active Substance: CAPECITABINE
     Indication: Colon cancer
     Dosage: OTHER QUANTITY : 4T;?FREQUENCY : TWICE A DAY;?
     Route: 048

REACTIONS (8)
  - Toxicity to various agents [None]
  - Diarrhoea [None]
  - Gastrointestinal pain [None]
  - Pyrexia [None]
  - Chills [None]
  - Pain [None]
  - Blood pressure decreased [None]
  - Toxic shock syndrome [None]
